FAERS Safety Report 21099383 (Version 2)
Quarter: 2022Q3

REPORT INFORMATION
  Report Type: Spontaneous
  Country: US (occurrence: US)
  Receive Date: 20220719
  Receipt Date: 20220826
  Transmission Date: 20221027
  Serious: Yes (Hospitalization, Other)
  Sender: FDA-Public Use
  Company Number: US-PFIZER INC-202200966387

PATIENT
  Age: 53 Year
  Sex: Male
  Weight: 104.32 kg

DRUGS (3)
  1. PAXLOVID [Suspect]
     Active Substance: NIRMATRELVIR\RITONAVIR
     Indication: COVID-19 treatment
     Dosage: UNK, 2X/DAY (300 MG -100 MG BID)
     Route: 048
     Dates: start: 20220630, end: 20220704
  2. AZITHROMYCIN [Concomitant]
     Active Substance: AZITHROMYCIN
     Dosage: UNK
     Route: 048
     Dates: start: 20220630, end: 20220704
  3. METHYLPREDNISOLONE [Concomitant]
     Active Substance: METHYLPREDNISOLONE
     Dosage: UNK
     Route: 048
     Dates: start: 20220630, end: 20220705

REACTIONS (10)
  - Pancreatitis acute [Recovered/Resolved]
  - Syncope [Unknown]
  - COVID-19 [Unknown]
  - Disease recurrence [Unknown]
  - Blood glucose increased [Recovered/Resolved]
  - White blood cell count increased [Unknown]
  - Abdominal pain lower [Unknown]
  - Constipation [Unknown]
  - Lipase increased [Unknown]
  - Back pain [Unknown]

NARRATIVE: CASE EVENT DATE: 20220704
